FAERS Safety Report 7867660-4 (Version None)
Quarter: 2011Q4

REPORT INFORMATION
  Report Type: 
  Country: None (occurrence: None)
  Receive Date: 20111028
  Receipt Date: 20111025
  Transmission Date: 20120403
  Serious: Yes (Life-Threatening)
  Sender: FDA-Public Use
  Company Number: US-JNJFOC-20111006630

PATIENT
  Sex: Male
  Weight: 68.95 kg

DRUGS (12)
  1. PROPRANOLOL [Concomitant]
     Route: 048
  2. STELARA [Suspect]
     Route: 058
     Dates: start: 20110201
  3. ASPIRIN [Concomitant]
     Route: 048
  4. FLUTICASONE PROPIONATE [Concomitant]
  5. AMLODIPINE [Concomitant]
     Route: 048
  6. PRIMIDONE [Concomitant]
     Route: 048
  7. STELARA [Suspect]
     Indication: PSORIASIS
     Route: 058
     Dates: start: 20110920
  8. ALBUTEROL [Concomitant]
     Route: 055
  9. PRAVASTATIN [Concomitant]
     Route: 048
  10. SPIRIVA [Concomitant]
  11. OMEPRAZOLE [Concomitant]
     Route: 048
  12. FLOMAX [Concomitant]
     Route: 048

REACTIONS (3)
  - PNEUMONIA [None]
  - MYOCARDIAL INFARCTION [None]
  - ACUTE RESPIRATORY FAILURE [None]
